FAERS Safety Report 24227062 (Version 5)
Quarter: 2024Q4

REPORT INFORMATION
  Report Type: Spontaneous
  Country: US (occurrence: US)
  Receive Date: 20240820
  Receipt Date: 20241118
  Transmission Date: 20250114
  Serious: No
  Sender: PFIZER
  Company Number: US-PFIZER INC-202400236148

PATIENT
  Age: 14 Year
  Sex: Female
  Weight: 43.084 kg

DRUGS (2)
  1. GENOTROPIN [Suspect]
     Active Substance: SOMATROPIN
     Indication: Short stature
     Dosage: 1.6 MG
  2. LEVOTHYROXINE [Concomitant]
     Active Substance: LEVOTHYROXINE
     Indication: Hypothyroidism
     Dosage: 1.4 MG

REACTIONS (4)
  - Device use issue [Unknown]
  - Device information output issue [Unknown]
  - Device use error [Unknown]
  - Drug dose omission by device [Unknown]
